FAERS Safety Report 7464721-9 (Version None)
Quarter: 2011Q2

REPORT INFORMATION
  Report Type: 
  Country: None (occurrence: None)
  Receive Date: 20110509
  Receipt Date: 20110426
  Transmission Date: 20111010
  Serious: Yes (Other)
  Sender: FDA-Public Use
  Company Number: FR-ELI_LILLY_AND_COMPANY-FR201104007083

PATIENT
  Sex: Female

DRUGS (3)
  1. FORTEO [Suspect]
     Indication: OSTEOPOROSIS
     Dosage: UNK, UNKNOWN
     Route: 058
     Dates: start: 20100722, end: 20110201
  2. TRAMADOL [Concomitant]
     Indication: BONE PAIN
     Dosage: UNK
  3. PARACETAMOL [Concomitant]
     Indication: BONE PAIN
     Dosage: UNK

REACTIONS (1)
  - OEDEMA PERIPHERAL [None]
